FAERS Safety Report 5177573-7 (Version None)
Quarter: 2006Q4

REPORT INFORMATION
  Report Type: 
  Country: None (occurrence: None)
  Receive Date: 20061207
  Receipt Date: 20061116
  Transmission Date: 20070319
  Serious: Yes (Other)
  Sender: FDA-Public Use
  Company Number: 2006148082

PATIENT
  Sex: Male

DRUGS (2)
  1. VIAGRA [Suspect]
     Dates: start: 19980101
  2. ANTIHYPERTENSIVES              (ANTIHYPERTENSIVES) [Concomitant]

REACTIONS (3)
  - BLINDNESS [None]
  - BLINDNESS UNILATERAL [None]
  - RETINAL VEIN OCCLUSION [None]
